FAERS Safety Report 24783303 (Version 2)
Quarter: 2025Q1

REPORT INFORMATION
  Report Type: Spontaneous
  Country: US (occurrence: US)
  Receive Date: 20241227
  Receipt Date: 20250130
  Transmission Date: 20250409
  Serious: No
  Sender: PFIZER
  Company Number: US-PFIZER INC-202400330785

PATIENT
  Age: 63 Year
  Sex: Female
  Weight: 86.168 kg

DRUGS (1)
  1. IBRANCE [Suspect]
     Active Substance: PALBOCICLIB
     Dosage: 100 MG, 1X/DAY
     Route: 048

REACTIONS (4)
  - Oropharyngeal pain [Unknown]
  - Dry mouth [Not Recovered/Not Resolved]
  - Dysphonia [Unknown]
  - Malaise [Not Recovered/Not Resolved]

NARRATIVE: CASE EVENT DATE: 20241201
